FAERS Safety Report 23436686 (Version 1)
Quarter: 2024Q1

REPORT INFORMATION
  Report Type: Spontaneous
  Country: US (occurrence: US)
  Receive Date: 20240124
  Receipt Date: 20240124
  Transmission Date: 20240410
  Serious: Yes (Life-Threatening, Hospitalization)
  Sender: FDA-Public Use
  Company Number: US-STRIDES ARCOLAB LIMITED-2024SP000775

PATIENT
  Age: 50 Year
  Sex: Male

DRUGS (7)
  1. PREDNISOLONE [Suspect]
     Active Substance: PREDNISOLONE
     Indication: Product used for unknown indication
     Dosage: UNK
     Route: 065
  2. REGORAFENIB [Suspect]
     Active Substance: REGORAFENIB
     Indication: Leiomyosarcoma metastatic
     Dosage: UNK
     Route: 065
  3. REGORAFENIB [Suspect]
     Active Substance: REGORAFENIB
     Indication: Skull base tumour
  4. REGORAFENIB [Suspect]
     Active Substance: REGORAFENIB
     Indication: Osteosarcoma
  5. TEMOZOLOMIDE [Suspect]
     Active Substance: TEMOZOLOMIDE
     Indication: Leiomyosarcoma metastatic
     Dosage: UNK
     Route: 065
  6. TEMOZOLOMIDE [Suspect]
     Active Substance: TEMOZOLOMIDE
     Indication: Osteosarcoma
  7. TEMOZOLOMIDE [Suspect]
     Active Substance: TEMOZOLOMIDE
     Indication: Skull base tumour

REACTIONS (7)
  - Hypotension [Recovered/Resolved]
  - Hypoxia [Recovered/Resolved]
  - Lactic acidosis [Recovered/Resolved]
  - Leukocytosis [Recovered/Resolved]
  - Pneumonia [Recovered/Resolved]
  - Sepsis [Recovered/Resolved]
  - Pseudomonas infection [Recovered/Resolved]
